FAERS Safety Report 9897355 (Version 1)
Quarter: 2014Q1

REPORT INFORMATION
  Report Type: Spontaneous
  Country: US (occurrence: US)
  Receive Date: 20140214
  Receipt Date: 20140214
  Transmission Date: 20141002
  Serious: No
  Sender: FDA-Public Use
  Company Number: US-DRREDDYS-USA/USA/13/0034816

PATIENT
  Age: 71 Year
  Sex: Female

DRUGS (3)
  1. SECTRAL [Suspect]
     Indication: PALPITATIONS
     Route: 048
     Dates: start: 201308, end: 2013
  2. NORVASC [Concomitant]
     Indication: PALPITATIONS
     Route: 065
  3. KLONOPIN [Concomitant]
     Indication: ANXIETY
     Route: 065

REACTIONS (1)
  - Headache [Recovered/Resolved]
